FAERS Safety Report 15027960 (Version 1)
Quarter: 2018Q2

REPORT INFORMATION
  Report Type: Spontaneous
  Country: CH (occurrence: CH)
  Receive Date: 20180619
  Receipt Date: 20180619
  Transmission Date: 20180711
  Serious: Yes (Life-Threatening)
  Sender: FDA-Public Use
  Company Number: CH-ASTRAZENECA-2018SE76865

PATIENT
  Age: 12375 Day
  Sex: Female

DRUGS (11)
  1. PRAZINE (ALPRAZOLAM) [Suspect]
     Active Substance: ALPRAZOLAM
     Dosage: 25.0MG UNKNOWN
     Route: 048
     Dates: start: 20180523
  2. TEMESTA (LORAZEPAM) [Suspect]
     Active Substance: LORAZEPAM
     Route: 048
     Dates: start: 20180522
  3. PLUS KALIUM [Concomitant]
     Dates: start: 20180524, end: 20180527
  4. RISPERIDONE. [Suspect]
     Active Substance: RISPERIDONE
     Route: 048
     Dates: start: 20180523, end: 20180529
  5. FLAGYL [Suspect]
     Active Substance: METRONIDAZOLE\METRONIDAZOLE HYDROCHLORIDE
     Indication: BACTERIAL VAGINOSIS
     Route: 048
     Dates: start: 20180521, end: 20180527
  6. PASPERTIN [Concomitant]
     Dates: start: 20180521
  7. ZOLPIDEM [Suspect]
     Active Substance: ZOLPIDEM\ZOLPIDEM TARTRATE
     Indication: HALLUCINATION, AUDITORY
     Route: 048
  8. ATRIPLA [Concomitant]
     Active Substance: EFAVIRENZ\EMTRICITABINE\TENOFOVIR DISOPROXIL FUMARATE
     Dates: start: 2017, end: 201802
  9. FURADANTINE [Suspect]
     Active Substance: NITROFURANTOIN
     Indication: CYSTITIS
     Route: 048
     Dates: start: 20180521, end: 20180525
  10. ISENTRESS [Concomitant]
     Active Substance: RALTEGRAVIR POTASSIUM
     Dates: start: 20180601
  11. SEROQUEL [Suspect]
     Active Substance: QUETIAPINE FUMARATE
     Indication: HALLUCINATION, AUDITORY
     Route: 048
     Dates: end: 20180524

REACTIONS (1)
  - Atrioventricular block second degree [Unknown]

NARRATIVE: CASE EVENT DATE: 20180525
